FAERS Safety Report 6226316-4 (Version None)
Quarter: 2009Q2

REPORT INFORMATION
  Report Type: 
  Country: None (occurrence: None)
  Receive Date: 20090612
  Receipt Date: 20090513
  Transmission Date: 20091009
  Serious: Yes (Hospitalization)
  Sender: FDA-Public Use
  Company Number: US-ABBOTT-09P-163-0573457-00

PATIENT
  Sex: Male
  Weight: 57.658 kg

DRUGS (3)
  1. HUMIRA [Suspect]
     Indication: PSORIASIS
     Route: 058
     Dates: start: 20081231
  2. BENADRYL [Concomitant]
     Indication: PRURITUS
     Dates: start: 20081201
  3. BENADRYL [Concomitant]
     Indication: PSORIASIS

REACTIONS (1)
  - DISSEMINATED TUBERCULOSIS [None]
